FAERS Safety Report 7357334-0 (Version None)
Quarter: 2011Q1

REPORT INFORMATION
  Report Type: 
  Country: None (occurrence: None)
  Receive Date: 20110311
  Receipt Date: 20110311
  Transmission Date: 20110831
  Serious: Yes (Hospitalization)
  Sender: FDA-Public Use
  Company Number: None

PATIENT
  Age: 73 Year
  Sex: Male
  Weight: 80 kg

DRUGS (1)
  1. XGEVA AMGEN [Suspect]
     Dosage: 120MG X1 SQ
     Route: 058
     Dates: start: 20101216, end: 20101216

REACTIONS (2)
  - HYPOCALCAEMIA [None]
  - CONDITION AGGRAVATED [None]
